FAERS Safety Report 17689553 (Version 1)
Quarter: 2020Q2

REPORT INFORMATION
  Report Type: Spontaneous
  Country: CH (occurrence: CH)
  Receive Date: 20200421
  Receipt Date: 20200421
  Transmission Date: 20200714
  Serious: Yes (Other)
  Sender: FDA-Public Use
  Company Number: NVSC2020CH104847

PATIENT
  Sex: Female
  Weight: 38 kg

DRUGS (1)
  1. COSENTYX [Suspect]
     Active Substance: SECUKINUMAB
     Indication: PSORIATIC ARTHROPATHY
     Dosage: UNK UKN
     Route: 058
     Dates: start: 201910

REACTIONS (6)
  - Weight decreased [Not Recovered/Not Resolved]
  - Uveitis [Unknown]
  - Sight disability [Unknown]
  - Vomiting projectile [Not Recovered/Not Resolved]
  - Eye pain [Unknown]
  - Ocular hyperaemia [Unknown]

NARRATIVE: CASE EVENT DATE: 201910
